FAERS Safety Report 17585059 (Version 1)
Quarter: 2020Q1

REPORT INFORMATION
  Report Type: Spontaneous
  Country: US (occurrence: US)
  Receive Date: 20200324
  Receipt Date: 20200324
  Transmission Date: 20200409
  Serious: No
  Sender: FDA-Public Use
  Company Number: None

PATIENT
  Age: 46 Year
  Sex: Male

DRUGS (1)
  1. CAPECITABINE TAB 500MG [Suspect]
     Active Substance: CAPECITABINE
     Dosage: OTHER
     Route: 048
     Dates: start: 202001

REACTIONS (7)
  - Diarrhoea [None]
  - Erythema [None]
  - Nausea [None]
  - Dysgeusia [None]
  - Temperature intolerance [None]
  - Skin burning sensation [None]
  - Decreased appetite [None]

NARRATIVE: CASE EVENT DATE: 20200324
